FAERS Safety Report 22244698 (Version 1)
Quarter: 2023Q2

REPORT INFORMATION
  Report Type: Spontaneous
  Country: CA (occurrence: CA)
  Receive Date: 20230424
  Receipt Date: 20230424
  Transmission Date: 20230721
  Serious: Yes (Other)
  Sender: FDA-Public Use
  Company Number: CA-JNJFOC-20230451149

PATIENT
  Age: 24 Year
  Sex: Female
  Weight: 88 kg

DRUGS (5)
  1. REMICADE [Suspect]
     Active Substance: INFLIXIMAB
     Indication: Crohn^s disease
     Route: 041
  2. INFLIXIMAB [Suspect]
     Active Substance: INFLIXIMAB
     Indication: Crohn^s disease
     Route: 043
  3. INFLIXIMAB [Suspect]
     Active Substance: INFLIXIMAB
     Route: 043
  4. INFLIXIMAB [Suspect]
     Active Substance: INFLIXIMAB
     Route: 043
  5. INFLIXIMAB [Suspect]
     Active Substance: INFLIXIMAB
     Route: 043

REACTIONS (5)
  - Weight decreased [Unknown]
  - Weight increased [Unknown]
  - Off label use [Unknown]
  - Intentional product use issue [Unknown]
  - Inappropriate schedule of product administration [Unknown]
